FAERS Safety Report 8423326-3 (Version None)
Quarter: 2012Q2

REPORT INFORMATION
  Report Type: 
  Country: None (occurrence: None)
  Receive Date: 20120608
  Receipt Date: 20120606
  Transmission Date: 20120825
  Serious: Yes (Other)
  Sender: FDA-Public Use
  Company Number: US-PFIZER INC-2012136574

PATIENT
  Sex: Female
  Weight: 72.6 kg

DRUGS (5)
  1. NEXIUM [Concomitant]
     Indication: GASTRIC DISORDER
     Dosage: UNK
  2. METFORMIN [Concomitant]
     Dosage: 500 MG, 2X/DAY
  3. LYRICA [Suspect]
     Indication: NEUROPATHY PERIPHERAL
     Dosage: 300 MG, 3X/DAY
     Route: 048
  4. CADUET [Concomitant]
     Dosage: UNK
  5. DIOVAN [Concomitant]
     Dosage: 325 MG, 1X/DAY

REACTIONS (3)
  - COUGH [None]
  - PNEUMONIA [None]
  - SNEEZING [None]
